FAERS Safety Report 9206971 (Version 3)
Quarter: 2013Q2

REPORT INFORMATION
  Report Type: Report from Study
  Country: DE (occurrence: DE)
  Receive Date: 20130403
  Receipt Date: 20130617
  Transmission Date: 20140414
  Serious: Yes (Hospitalization)
  Sender: FDA-Public Use
  Company Number: DE-UCBSA-081749

PATIENT
  Age: 45 Year
  Sex: Female

DRUGS (8)
  1. VIMPAT [Suspect]
     Indication: EPILEPSY
     Dosage: DAILY DOSE: 50 MG
     Dates: start: 20081003
  2. VIMPAT [Suspect]
     Indication: EPILEPSY
     Dosage: DAILY DOSE: 250 MG
     Dates: end: 2009
  3. VIMPAT [Suspect]
     Indication: EPILEPSY
     Dosage: DAILY 300MG
     Dates: start: 2009
  4. LAMOTRIGINE [Concomitant]
     Indication: EPILEPSY
     Dosage: DAILY DOSE: 450 MG
  5. LAMOTRIGINE [Concomitant]
     Indication: EPILEPSY
     Dosage: DAILY DOSE: 400 MG
  6. CARBAMAZEPINE [Concomitant]
     Indication: EPILEPSY
     Dosage: DAILY DOSE: 600 MG
  7. CLOBAZAM [Concomitant]
     Indication: EPILEPSY
     Dosage: DAILY DOSE: 15 MG
  8. CLOBAZAM [Concomitant]
     Indication: EPILEPSY
     Dosage: DAILY DOSE: 7.5 MG

REACTIONS (2)
  - Grand mal convulsion [Unknown]
  - Postictal psychosis [Unknown]
